FAERS Safety Report 11106687 (Version 1)
Quarter: 2015Q2

REPORT INFORMATION
  Report Type: Spontaneous
  Country: FR (occurrence: None)
  Receive Date: 20150508
  Receipt Date: 20150508
  Transmission Date: 20150821
  Serious: Yes (Hospitalization, Other)
  Sender: FDA-Public Use
  Company Number: FR2015GSK061402

PATIENT
  Age: 23 Year
  Sex: Male

DRUGS (17)
  1. ZIDOVUDINE (ZIDOVUDINE) UNKNOWN) [Suspect]
     Active Substance: ZIDOVUDINE
     Indication: HIV INFECTION
  2. EMTRICITABINE (EMTRICITABINE) UNKNOWN [Suspect]
     Active Substance: EMTRICITABINE
     Indication: HIV INFECTION
  3. DOLUTEGRAVIR (DOLUTEGRAVIR) UNKNOWN [Concomitant]
     Active Substance: DOLUTEGRAVIR
  4. ABACAVIR (ABACAVIR SULPHATE) UNKNOWN [Suspect]
     Active Substance: ABACAVIR
     Indication: HIV INFECTION
  5. NELFINAVIR (NELFINAVIR) [Suspect]
     Active Substance: NELFINAVIR
     Indication: HIV INFECTION
  6. FOSCARNET (FOSCARNET) [Suspect]
     Active Substance: FOSCARNET
     Indication: HIV INFECTION
  7. TENOFOVIR (TENOFOVIR) UNKNOWN [Suspect]
     Active Substance: TENOFOVIR
     Indication: HIV INFECTION
  8. ENFUVIRTIDE (ENFUVIRTIDE) [Suspect]
     Active Substance: ENFUVIRTIDE
     Indication: HIV INFECTION
  9. RALTEGRAVIR (RALTEGRAVIR) [Suspect]
     Active Substance: RALTEGRAVIR
     Indication: HIV INFECTION
  10. LAMIVUDINE (LAMIVUDINE) UNKNOWN [Suspect]
     Active Substance: LAMIVUDINE
     Indication: HIV INFECTION
  11. EFAVIRENZ (EFAVIRENZ) [Suspect]
     Active Substance: EFAVIRENZ
     Indication: HIV INFECTION
  12. NEVIRAPINE (NEVIRAPINE) [Suspect]
     Active Substance: NEVIRAPINE
     Indication: HIV INFECTION
  13. FOSAMPRENAVIR (FOSAMPRENAVIR) UNKNOWN [Suspect]
     Active Substance: FOSAMPRENAVIR
     Indication: HIV INFECTION
  14. DIDANOSINE (DIDANOSINE) [Suspect]
     Active Substance: DIDANOSINE
     Indication: HIV INFECTION
  15. LOPINAVIR (LOPINAVIR) [Suspect]
     Active Substance: LOPINAVIR
     Indication: HIV INFECTION
  16. DARUNAVIR (DARUNAVIR) [Suspect]
     Active Substance: DARUNAVIR
     Indication: HIV INFECTION
  17. RILPIVIRINE HYDROCHLORIDE (RILPIVIRINE HYDROCHLORIDE) [Concomitant]

REACTIONS (7)
  - Immunodeficiency [None]
  - Nephropathy toxic [None]
  - Pneumonia [None]
  - Multiple-drug resistance [None]
  - No therapeutic response [None]
  - Drug dose omission [None]
  - Pyrexia [None]
